FAERS Safety Report 18952627 (Version 1)
Quarter: 2021Q1

REPORT INFORMATION
  Report Type: Spontaneous
  Country: FR (occurrence: FR)
  Receive Date: 20210301
  Receipt Date: 20210301
  Transmission Date: 20210420
  Serious: Yes (Other)
  Sender: FDA-Public Use
  Company Number: FR-TEVA-2021-FR-1883956

PATIENT
  Age: 79 Year
  Sex: Female

DRUGS (12)
  1. METFORMINE ARROW 1000 MG, COMPRIME PELLICULE SECABLE [Suspect]
     Active Substance: METFORMIN HYDROCHLORIDE
     Indication: TYPE 2 DIABETES MELLITUS
     Dosage: 2GM
     Route: 048
     Dates: start: 20210105, end: 20210105
  2. KARDEGIC [Suspect]
     Active Substance: ASPIRIN DL-LYSINE
     Indication: CARDIAC FAILURE
     Dosage: 75MG,IN SACHET?DOSE
     Route: 048
  3. BISOCE 2,5 MG, COMPRIME PELLICULE SECABLE [Suspect]
     Active Substance: BISOPROLOL FUMARATE
     Indication: HYPERTENSION
     Dosage: 5MG
     Route: 048
  4. CALCIPARINE [Suspect]
     Active Substance: HEPARIN CALCIUM
     Indication: THROMBOSIS PROPHYLAXIS
     Dosage: 2DF
     Route: 058
     Dates: start: 20210105, end: 20210112
  5. LEVOTHYROX 50 MICROGRAMMES, COMPRIME SECABLE [Suspect]
     Active Substance: LEVOTHYROXINE SODIUM
     Indication: HYPOTHYROIDISM
     Dosage: SCORED, 150MG
     Route: 048
  6. AMLODIPINE ARROW 10 MG, COMPRIME [Suspect]
     Active Substance: AMLODIPINE BESYLATE
     Indication: HYPERTENSION
     Dosage: 10MG
     Route: 048
  7. ROSUVASTATINE MYLAN 20 MG, COMPRIME PELLICULE [Suspect]
     Active Substance: ROSUVASTATIN
     Indication: CARDIOVASCULAR EVENT PROPHYLAXIS
     Dosage: 20MG
     Route: 048
  8. LISINOPRIL DIHYDRATE [Suspect]
     Active Substance: LISINOPRIL
     Indication: HYPERTENSION
     Dosage: 20MG
     Route: 048
     Dates: start: 20210105, end: 20210111
  9. FUROSEMIDE RENAUDIN 20 MG/2 ML, SOLUTION INJECTABLE (IM?IV) [Suspect]
     Active Substance: FUROSEMIDE
     Indication: CARDIAC FAILURE
     Dosage: 40MG
     Route: 042
     Dates: start: 20210105, end: 20210108
  10. TRULICITY [Suspect]
     Active Substance: DULAGLUTIDE
     Indication: TYPE 2 DIABETES MELLITUS
     Dosage: 1DF
     Route: 058
  11. REPAGLINIDE ARROW 1 MG, COMPRIME [Suspect]
     Active Substance: REPAGLINIDE
     Indication: TYPE 2 DIABETES MELLITUS
     Dosage: 3MG
     Route: 048
  12. HUMALOG [Suspect]
     Active Substance: INSULIN LISPRO
     Indication: TYPE 2 DIABETES MELLITUS
     Dosage: 30IU
     Route: 058
     Dates: start: 20210105, end: 20210112

REACTIONS (4)
  - Transcription medication error [Recovered/Resolved]
  - Hypokalaemia [Recovered/Resolved]
  - Acute kidney injury [Not Recovered/Not Resolved]
  - Product prescribing error [Recovered/Resolved]

NARRATIVE: CASE EVENT DATE: 20210106
